FAERS Safety Report 13455472 (Version 6)
Quarter: 2019Q1

REPORT INFORMATION
  Report Type: Spontaneous
  Country: US (occurrence: US)
  Receive Date: 20170419
  Receipt Date: 20190304
  Transmission Date: 20190417
  Serious: No
  Sender: FDA-Public Use
  Company Number: US-PFIZER INC-2017169297

PATIENT
  Age: 70 Year
  Sex: Female

DRUGS (4)
  1. GASCON [Suspect]
     Active Substance: DIMETHICONE
     Indication: BREAST CANCER STAGE IV
     Dosage: 25 MG, UNK
     Dates: start: 201512
  2. IBRANCE [Suspect]
     Active Substance: PALBOCICLIB
     Dosage: 100 MG, CYCLIC (1 CAPSULE EVERY DAY, ON DAYS 1-21, EVERY 28 DAYS)
     Route: 048
  3. IBRANCE [Suspect]
     Active Substance: PALBOCICLIB
     Indication: BREAST CANCER STAGE IV
     Dosage: 125 MG, DAILY
     Route: 048
     Dates: start: 201512
  4. AROMASIN [Suspect]
     Active Substance: EXEMESTANE
     Indication: BREAST CANCER STAGE IV
     Dosage: 25 MG, 1X/DAY
     Dates: start: 20151220

REACTIONS (4)
  - Blood count abnormal [Unknown]
  - Stomatitis [Unknown]
  - Pain [Not Recovered/Not Resolved]
  - Oral pain [Recovered/Resolved]

NARRATIVE: CASE EVENT DATE: 201509
